FAERS Safety Report 5918906-0 (Version None)
Quarter: 2008Q4

REPORT INFORMATION
  Report Type: 
  Country: None (occurrence: None)
  Receive Date: 20081015
  Receipt Date: 20081010
  Transmission Date: 20090506
  Serious: Yes (Hospitalization)
  Sender: FDA-Public Use
  Company Number: FI-AVENTIS-200819562GDDC

PATIENT
  Age: 72 Year
  Sex: Male
  Weight: 87 kg

DRUGS (3)
  1. GLIMEPIRIDE [Suspect]
     Route: 048
     Dates: start: 20051103
  2. RAMIPRIL [Concomitant]
     Dosage: DOSE: UNK
  3. FENOFIBRATE [Concomitant]
     Dosage: DOSE: UNK

REACTIONS (2)
  - FALL [None]
  - HYPOGLYCAEMIA [None]
